FAERS Safety Report 9856633 (Version 1)
Quarter: 2014Q1

REPORT INFORMATION
  Report Type: Spontaneous
  Country: HR (occurrence: HR)
  Receive Date: 20140130
  Receipt Date: 20140130
  Transmission Date: 20141002
  Serious: Yes (Hospitalization)
  Sender: FDA-Public Use
  Company Number: PHHY2014HR009824

PATIENT
  Sex: 0

DRUGS (1)
  1. DICLOFENAC [Suspect]

REACTIONS (2)
  - Upper gastrointestinal haemorrhage [Unknown]
  - Drug prescribing error [Unknown]
